FAERS Safety Report 5263598-X (Version None)
Quarter: 2007Q1

REPORT INFORMATION
  Report Type: 
  Country: None (occurrence: None)
  Receive Date: 20070313
  Receipt Date: 20070301
  Transmission Date: 20070707
  Serious: Yes (Other)
  Sender: FDA-Public Use
  Company Number: BR-ROCHE-481771

PATIENT
  Age: 37 Year
  Sex: Female
  Weight: 54 kg

DRUGS (5)
  1. RIVOTRIL [Suspect]
     Indication: BIPOLAR DISORDER
     Dosage: REPORTED STOP DATE: 2007
     Route: 048
     Dates: start: 20050615
  2. RIVOTRIL [Suspect]
     Dosage: REPORTED START DATE: 2007
     Route: 048
  3. FLUOXETINE [Suspect]
     Indication: BIPOLAR DISORDER
     Dosage: REPORTED STOP DATE: 2007
     Route: 048
     Dates: start: 20050615
  4. FLUOXETINE [Suspect]
     Dosage: REPORTED START DATE: 2007
     Route: 048
  5. ISOTRETINOIN [Concomitant]
     Indication: ACNE
     Route: 048
     Dates: start: 20070124

REACTIONS (3)
  - HALLUCINATION, VISUAL [None]
  - MEMORY IMPAIRMENT [None]
  - SPEECH DISORDER [None]
